FAERS Safety Report 4970340-6 (Version None)
Quarter: 2006Q2

REPORT INFORMATION
  Report Type: 
  Country: None (occurrence: None)
  Receive Date: 20060406
  Receipt Date: 20060322
  Transmission Date: 20061013
  Serious: Yes (Hospitalization, Other)
  Sender: FDA-Public Use
  Company Number: S06-FRA-01226-01

PATIENT
  Age: 92 Year
  Sex: Female
  Weight: 55 kg

DRUGS (5)
  1. MEMANTINE HCL [Suspect]
     Indication: DEMENTIA
     Dosage: 10 MG BID PO
     Route: 048
     Dates: start: 20060201, end: 20060302
  2. STILNOX (ZOLPIDEM) [Suspect]
     Indication: INSOMNIA
     Dosage: 1 QD PO
     Route: 048
  3. ALDALIX [Concomitant]
  4. CORVASAL (MOLSIDOMINE) [Concomitant]
  5. TIAPRIDAL (TIAPRIDE) [Suspect]
     Indication: AGITATION
     Dosage: 50 MG QD PO
     Route: 048
     Dates: start: 20060220

REACTIONS (12)
  - ALANINE AMINOTRANSFERASE INCREASED [None]
  - ANTI-HBS ANTIBODY POSITIVE [None]
  - ASPARTATE AMINOTRANSFERASE INCREASED [None]
  - BILIARY DILATATION [None]
  - BLOOD ALKALINE PHOSPHATASE INCREASED [None]
  - C-REACTIVE PROTEIN INCREASED [None]
  - CHOLELITHIASIS [None]
  - GALLBLADDER DISORDER [None]
  - GAMMA-GLUTAMYLTRANSFERASE INCREASED [None]
  - HEPATIC FUNCTION ABNORMAL [None]
  - HEPATITIS A ANTIBODY POSITIVE [None]
  - JAUNDICE [None]
